FAERS Safety Report 23085589 (Version 1)
Quarter: 2023Q4

REPORT INFORMATION
  Report Type: Report from Study
  Country: US (occurrence: US)
  Receive Date: 20231019
  Receipt Date: 20231019
  Transmission Date: 20240110
  Serious: Yes (Other)
  Sender: FDA-Public Use
  Company Number: US-JAZZ PHARMACEUTICALS-2022-US-019301

PATIENT
  Sex: Male

DRUGS (48)
  1. XYWAV [Suspect]
     Active Substance: CALCIUM OXYBATE\MAGNESIUM OXYBATE\POTASSIUM OXYBATE\SODIUM OXYBATE
     Indication: Narcolepsy
     Dosage: 5.5 GRAM
     Route: 048
  2. XYWAV [Suspect]
     Active Substance: CALCIUM OXYBATE\MAGNESIUM OXYBATE\POTASSIUM OXYBATE\SODIUM OXYBATE
     Indication: Cataplexy
     Dosage: 3.75 GRAM
  3. XYWAV [Suspect]
     Active Substance: CALCIUM OXYBATE\MAGNESIUM OXYBATE\POTASSIUM OXYBATE\SODIUM OXYBATE
     Indication: Somnolence
  4. CAYENNE PEPPER [Suspect]
     Active Substance: CAPSICUM
     Indication: Product used for unknown indication
  5. CYMBALTA [Concomitant]
     Active Substance: DULOXETINE HYDROCHLORIDE
     Dosage: 0000
     Dates: start: 20190203
  6. VITAMIN D2 [Concomitant]
     Active Substance: ERGOCALCIFEROL
     Dosage: 0000
     Dates: start: 20180802
  7. NAPROSYN [Concomitant]
     Active Substance: NAPROXEN
     Dosage: 0000
     Dates: start: 20181112
  8. NAPROSYN [Concomitant]
     Active Substance: NAPROXEN
     Dosage: 500 MILLIGRAM
     Route: 048
  9. ZOFRAN [Concomitant]
     Active Substance: ONDANSETRON HYDROCHLORIDE
     Dosage: 0000
     Dates: start: 20190209
  10. PROTONIX [Concomitant]
     Active Substance: PANTOPRAZOLE SODIUM
     Dosage: 0000
     Dates: start: 20190203
  11. PROVIGIL [Concomitant]
     Active Substance: MODAFINIL
     Dosage: 0000
     Dates: start: 20190214
  12. ADDERALL [Concomitant]
     Active Substance: AMPHETAMINE ASPARTATE\AMPHETAMINE SULFATE\DEXTROAMPHETAMINE SACCHARATE\DEXTROAMPHETAMINE SULFATE
     Dosage: 0000
     Dates: start: 20190515
  13. BACLOFEN [Concomitant]
     Active Substance: BACLOFEN
     Dosage: 0000
     Dates: start: 20190802
  14. PROVENTIL [Concomitant]
     Active Substance: ALBUTEROL
     Dosage: 0000
     Dates: start: 20200429
  15. ISOSORBIDE [Concomitant]
     Active Substance: ISOSORBIDE
     Dosage: 0000
     Dates: start: 20200226
  16. NITROSTAT [Concomitant]
     Active Substance: NITROGLYCERIN
     Dosage: 0000
     Route: 060
     Dates: start: 20200206
  17. DIOVAN [Concomitant]
     Active Substance: VALSARTAN
     Dosage: 0000
     Dates: start: 20200518
  18. DIOVAN [Concomitant]
     Active Substance: VALSARTAN
     Dosage: UNK, QD
     Route: 048
     Dates: start: 20230808
  19. CLONAZEPAM [Concomitant]
     Active Substance: CLONAZEPAM
     Dosage: 0000
     Dates: start: 20200701
  20. LYRICA [Concomitant]
     Active Substance: PREGABALIN
     Dosage: 0000
     Dates: start: 20210715
  21. METOPROLOL SUCCINATE [Concomitant]
     Active Substance: METOPROLOL SUCCINATE
     Dosage: UNK
     Dates: start: 20220412
  22. METAXALON [Concomitant]
     Indication: Product used for unknown indication
     Dosage: 0000
     Dates: start: 20220324
  23. ARMODAFINIL [Concomitant]
     Active Substance: ARMODAFINIL
     Indication: Product used for unknown indication
  24. DULIXETIN [Concomitant]
     Indication: Product used for unknown indication
  25. HYDROXYCHLOROQUINE SULFATE [Concomitant]
     Active Substance: HYDROXYCHLOROQUINE SULFATE
     Indication: Product used for unknown indication
  26. ISOSORBIDE DINITRATE [Concomitant]
     Active Substance: ISOSORBIDE DINITRATE
     Indication: Product used for unknown indication
  27. LAMOTRIZIN [Concomitant]
     Indication: Product used for unknown indication
  28. PREGABALIN [Concomitant]
     Active Substance: PREGABALIN
     Indication: Product used for unknown indication
  29. ONDANSETRON [Concomitant]
     Active Substance: ONDANSETRON
     Indication: Product used for unknown indication
  30. COZAAR [Concomitant]
     Active Substance: LOSARTAN POTASSIUM
     Dosage: 0000
     Dates: start: 20230314
  31. COZAAR [Concomitant]
     Active Substance: LOSARTAN POTASSIUM
     Dosage: UNK
  32. SIMPONI ARIA [Concomitant]
     Active Substance: GOLIMUMAB
     Dosage: UNK
     Dates: start: 20230227
  33. MINERALS\VITAMINS [Concomitant]
     Active Substance: MINERALS\VITAMINS
     Dosage: UNK
     Dates: start: 20230215
  34. KLONOPIN [Concomitant]
     Active Substance: CLONAZEPAM
     Dosage: UNK
     Route: 048
     Dates: start: 20210203
  35. DICLOFENAC [Concomitant]
     Active Substance: DICLOFENAC
     Dosage: APPLY TOPICALLY FOUR TIMES A DAY
  36. ENBREL [Concomitant]
     Active Substance: ETANERCEPT
     Dosage: INJECT UNDER THE SKIN
     Route: 058
  37. DILAUDID [Concomitant]
     Active Substance: HYDROMORPHONE HYDROCHLORIDE
     Dosage: 2 MILLIGRAM, Q4H
     Route: 048
  38. PLAQUENIL [Concomitant]
     Active Substance: HYDROXYCHLOROQUINE SULFATE
     Dosage: UNK, BID
     Route: 048
  39. MONOKET [Concomitant]
     Active Substance: ISOSORBIDE MONONITRATE
     Dosage: 15 MILLIGRAM, QD
     Route: 048
  40. LAMICTAL [Concomitant]
     Active Substance: LAMOTRIGINE
     Dosage: UNK
     Dates: start: 20140813
  41. SKELAXIN [Concomitant]
     Active Substance: METAXALONE
     Dosage: 200 MILLIGRAM, QID
     Route: 048
  42. TOPROL XL [Concomitant]
     Active Substance: METOPROLOL SUCCINATE
     Dosage: TAJ=KE 2 TABLET BY MOUTH EVERY MORNING AND 1 TABLET EVERY EVENING
     Route: 048
     Dates: start: 20230714
  43. LOPRESSOR [Concomitant]
     Active Substance: METOPROLOL TARTRATE
     Dosage: 50 MILLIGRAM, BID
     Route: 048
  44. GOLIMUMAB [Concomitant]
     Active Substance: GOLIMUMAB
     Dosage: INFUSE 2MG/KG INTOA VENOUS CATHETER EVERY OTHER MONTH
     Route: 042
  45. PRILOSEC [Concomitant]
     Active Substance: OMEPRAZOLE MAGNESIUM
     Route: 048
  46. SUNOSI [Concomitant]
     Active Substance: SOLRIAMFETOL
     Dosage: UNK
     Route: 048
     Dates: start: 20230828
  47. BACTRIM [Concomitant]
     Active Substance: SULFAMETHOXAZOLE\TRIMETHOPRIM
     Dosage: 160-800MG PER TABLET
     Dates: start: 20230210
  48. BACTRIM [Concomitant]
     Active Substance: SULFAMETHOXAZOLE\TRIMETHOPRIM
     Dosage: 80-400 MG PER TABLET
     Dates: start: 20230220

REACTIONS (4)
  - Arrhythmia [Unknown]
  - Chest pain [Unknown]
  - Bronchospasm [Unknown]
  - Product administration interrupted [Unknown]
